FAERS Safety Report 4578060-7 (Version None)
Quarter: 2005Q1

REPORT INFORMATION
  Report Type: 
  Country: None (occurrence: None)
  Receive Date: 20050209
  Receipt Date: 20050124
  Transmission Date: 20050727
  Serious: Yes (Hospitalization)
  Sender: FDA-Public Use
  Company Number: GBS041015832

PATIENT
  Age: 69 Year
  Sex: Male
  Weight: 69 kg

DRUGS (3)
  1. PERGOLIDE MESYLATE [Suspect]
     Dosage: 5 MG DAY
     Dates: start: 19940101
  2. SINEMET [Concomitant]
  3. SINEMET CR [Concomitant]

REACTIONS (1)
  - PHIMOSIS [None]
